FAERS Safety Report 4862022-6 (Version None)
Quarter: 2005Q4

REPORT INFORMATION
  Report Type: 
  Country: None (occurrence: None)
  Receive Date: 20051129
  Receipt Date: 20050519
  Transmission Date: 20060501
  Serious: Yes (Death)
  Sender: FDA-Public Use
  Company Number: US_0411107838

PATIENT
  Age: 47 Year
  Sex: Male
  Weight: 109 kg

DRUGS (3)
  1. ZYPREXA [Suspect]
     Indication: SCHIZOPHRENIA, PARANOID TYPE
     Dosage: 15 MG
  2. DIPHTHERIA AND TETANUS VACCINE [Concomitant]
  3. TUBERCULIN PPD (TUBERCULIN PPD) [Concomitant]

REACTIONS (5)
  - DIABETIC KETOACIDOSIS [None]
  - LUNG NEOPLASM [None]
  - SINUS BRADYCARDIA [None]
  - SKIN LESION [None]
  - WEIGHT DECREASED [None]
